FAERS Safety Report 9106585 (Version 3)
Quarter: 2013Q2

REPORT INFORMATION
  Report Type: Spontaneous
  Country: US (occurrence: US)
  Receive Date: 20130221
  Receipt Date: 20130408
  Transmission Date: 20140414
  Serious: Yes (Other)
  Sender: FDA-Public Use
  Company Number: US-PFIZER INC-2013061600

PATIENT
  Age: 85 Year
  Sex: Female
  Weight: 41 kg

DRUGS (3)
  1. LATANOPROST [Suspect]
     Indication: GLAUCOMA
     Dosage: UNK, 1X/DAY (DAILY)
     Route: 047
     Dates: start: 2011, end: 201111
  2. BABY ASPIRIN [Concomitant]
     Dosage: UNK, 1X/DAY
  3. ICAPS [Concomitant]
     Dosage: UNK
     Route: 047
     Dates: start: 2012

REACTIONS (2)
  - Visual impairment [Recovered/Resolved]
  - Product quality issue [Unknown]
